FAERS Safety Report 6130724-X (Version None)
Quarter: 2009Q1

REPORT INFORMATION
  Report Type: 
  Country: None (occurrence: None)
  Receive Date: 20090325
  Receipt Date: 20090313
  Transmission Date: 20090719
  Serious: Yes (Hospitalization)
  Sender: FDA-Public Use
  Company Number: BR-BAYER-200913650LA

PATIENT
  Age: 49 Year
  Sex: Female

DRUGS (2)
  1. BETAFERON [Suspect]
     Indication: MULTIPLE SCLEROSIS
     Dosage: BETAJECT
     Route: 058
     Dates: start: 20081001, end: 20090214
  2. ANTIBIOTIC [Concomitant]
     Dates: start: 20090201, end: 20090201

REACTIONS (4)
  - ABDOMINAL PAIN [None]
  - DRUG HYPERSENSITIVITY [None]
  - INTRA-ABDOMINAL HAEMORRHAGE [None]
  - TUBAL RUPTURE [None]
